FAERS Safety Report 5325785-1 (Version None)
Quarter: 2007Q2

REPORT INFORMATION
  Report Type: 
  Country: None (occurrence: None)
  Receive Date: 20070510
  Receipt Date: 20070426
  Transmission Date: 20071010
  Serious: Yes (Disabling)
  Sender: FDA-Public Use
  Company Number: 155915ISR

PATIENT
  Age: 54 Year
  Sex: Female

DRUGS (1)
  1. MIRTAZAPINE [Suspect]
     Indication: DEPRESSION
     Dosage: 90 MG (90 MG, 1 IN 1 D), ORAL
     Route: 048
     Dates: end: 20061201

REACTIONS (4)
  - DIABETES MELLITUS INADEQUATE CONTROL [None]
  - EXERCISE LACK OF [None]
  - TREATMENT NONCOMPLIANCE [None]
  - WEIGHT INCREASED [None]
